FAERS Safety Report 26184961 (Version 1)
Quarter: 2025Q4

REPORT INFORMATION
  Report Type: Spontaneous
  Country: US (occurrence: US)
  Receive Date: 20251222
  Receipt Date: 20251222
  Transmission Date: 20260118
  Serious: Yes (Hospitalization)
  Sender: ROCHE
  Company Number: US-ROCHE-10000457714

PATIENT
  Sex: Female

DRUGS (2)
  1. EVRYSDI [Suspect]
     Active Substance: RISDIPLAM
     Indication: Product used for unknown indication
  2. EVRYSDI [Suspect]
     Active Substance: RISDIPLAM

REACTIONS (2)
  - Post procedural infection [Unknown]
  - Clostridium difficile infection [Unknown]
